FAERS Safety Report 17858042 (Version 1)
Quarter: 2020Q2

REPORT INFORMATION
  Report Type: Spontaneous
  Country: US (occurrence: US)
  Receive Date: 20200604
  Receipt Date: 20200604
  Transmission Date: 20200714
  Serious: Yes (Other)
  Sender: FDA-Public Use
  Company Number: US-ALEXION PHARMACEUTICALS INC.-A202007629

PATIENT
  Age: 32 Year
  Sex: Female

DRUGS (1)
  1. STRENSIQ [Suspect]
     Active Substance: ASFOTASE ALFA
     Indication: PRODUCT USED FOR UNKNOWN INDICATION
     Dosage: 1/2 LABELED DOSE
     Route: 065
     Dates: start: 2020

REACTIONS (3)
  - White blood cell count decreased [Unknown]
  - Lymphadenopathy [Unknown]
  - Thrombocytopenia [Unknown]
